FAERS Safety Report 8414414-6 (Version None)
Quarter: 2012Q2

REPORT INFORMATION
  Report Type: 
  Country: None (occurrence: None)
  Receive Date: 20120605
  Receipt Date: 20120522
  Transmission Date: 20120825
  Serious: Yes (Other)
  Sender: FDA-Public Use
  Company Number: CHPA2012US011418

PATIENT
  Sex: Female

DRUGS (1)
  1. BENEFIBER PLUS CALCIUM WITH WHEAT DEXTRIN [Suspect]
     Dosage: UNK, UNK
     Route: 048

REACTIONS (2)
  - CYSTITIS [None]
  - FLATULENCE [None]
